FAERS Safety Report 5644879-4 (Version None)
Quarter: 2008Q1

REPORT INFORMATION
  Report Type: 
  Country: None (occurrence: None)
  Receive Date: 20080229
  Receipt Date: 20071002
  Transmission Date: 20080703
  Serious: No
  Sender: FDA-Public Use
  Company Number: A0685639A

PATIENT
  Age: 40 Year
  Sex: Female

DRUGS (5)
  1. VALTREX [Suspect]
     Dosage: 500MG TWICE PER DAY
     Route: 048
     Dates: start: 20071001
  2. MULTI-VITAMIN [Concomitant]
  3. VITAMIN C POWDER [Concomitant]
  4. LYSINE [Concomitant]
  5. ZOVIRAX [Concomitant]

REACTIONS (15)
  - ABDOMINAL PAIN [None]
  - ARTHRALGIA [None]
  - CONSTIPATION [None]
  - DIZZINESS [None]
  - DRY SKIN [None]
  - EMOTIONAL DISTRESS [None]
  - FEELING ABNORMAL [None]
  - HEADACHE [None]
  - INSOMNIA [None]
  - IRRITABILITY [None]
  - MYALGIA [None]
  - PALPITATIONS [None]
  - RASH [None]
  - SKIN EXFOLIATION [None]
  - SWOLLEN TONGUE [None]
